FAERS Safety Report 24213123 (Version 3)
Quarter: 2025Q3

REPORT INFORMATION
  Report Type: Report from Study
  Country: JP (occurrence: JP)
  Receive Date: 20240815
  Receipt Date: 20250729
  Transmission Date: 20251020
  Serious: Yes (Death, Hospitalization, Other)
  Sender: EISAI
  Company Number: JP-Eisai-202405811_LEN-EC_P_1

PATIENT
  Sex: Female

DRUGS (1)
  1. LENVATINIB [Suspect]
     Active Substance: LENVATINIB
     Indication: Endometrial cancer

REACTIONS (4)
  - Malignant neoplasm progression [Fatal]
  - Anaemia [Recovering/Resolving]
  - Urinary tract infection [Not Recovered/Not Resolved]
  - Blood creatinine increased [Recovering/Resolving]

NARRATIVE: CASE EVENT DATE: 20240711
